FAERS Safety Report 17581537 (Version 1)
Quarter: 2020Q1

REPORT INFORMATION
  Report Type: Spontaneous
  Country: US (occurrence: US)
  Receive Date: 20200325
  Receipt Date: 20200325
  Transmission Date: 20200409
  Serious: Yes (Hospitalization)
  Sender: FDA-Public Use
  Company Number: US-PHARMING-PHAUS2020000108

PATIENT

DRUGS (3)
  1. IVIG [Concomitant]
     Active Substance: HUMAN IMMUNOGLOBULIN G
     Indication: PRODUCT USED FOR UNKNOWN INDICATION
     Dosage: UNK, ONCE WEEKLY
  2. HAEGARDA [Concomitant]
     Active Substance: HUMAN C1-ESTERASE INHIBITOR
     Indication: PRODUCT USED FOR UNKNOWN INDICATION
     Dosage: UNK, ONCE WEEKLY EVERY SATURDAY
  3. RUCONEST [Suspect]
     Active Substance: HUMAN C1-ESTERASE INHIBITOR
     Indication: HEREDITARY ANGIOEDEMA WITH C1 ESTERASE INHIBITOR DEFICIENCY
     Dosage: UNK UNK, ONCE WEEKLY EVERY TUESDAY
     Route: 042
     Dates: start: 20170601

REACTIONS (5)
  - Knee arthroplasty [Unknown]
  - Malaise [Unknown]
  - Product use in unapproved indication [Unknown]
  - Hereditary angioedema [Unknown]
  - Meniscus removal [Unknown]

NARRATIVE: CASE EVENT DATE: 2018
